FAERS Safety Report 21722618 (Version 1)
Quarter: 2022Q4

REPORT INFORMATION
  Report Type: Spontaneous
  Country: None (occurrence: US)
  Receive Date: 20221213
  Receipt Date: 20221213
  Transmission Date: 20230113
  Serious: No
  Sender: FDA-Public Use
  Company Number: US-Kindeva Drug Delivery L.P.-2135827

PATIENT
  Age: 78 Year
  Sex: Female

DRUGS (1)
  1. ALBUTEROL SULFATE [Suspect]
     Active Substance: ALBUTEROL SULFATE
     Indication: Emphysema
     Route: 055

REACTIONS (4)
  - Drug delivery system malfunction [Unknown]
  - Incorrect dose administered by device [Unknown]
  - Suspected product quality issue [Unknown]
  - Dyspnoea [Unknown]
